FAERS Safety Report 21132073 (Version 9)
Quarter: 2022Q4

REPORT INFORMATION
  Report Type: Spontaneous
  Country: CN (occurrence: CN)
  Receive Date: 20220726
  Receipt Date: 20221002
  Transmission Date: 20230113
  Serious: Yes (Other)
  Sender: FDA-Public Use
  Company Number: CN-JNJFOC-20220734278

PATIENT
  Age: 34 Year
  Sex: Female

DRUGS (5)
  1. STELARA [Suspect]
     Active Substance: USTEKINUMAB
     Indication: Crohn^s disease
     Route: 040
     Dates: start: 20220715
  2. IBUPROFEN [Suspect]
     Active Substance: IBUPROFEN
     Indication: Menstrual disorder
     Route: 065
  3. DEXAMETHASONE [Suspect]
     Active Substance: DEXAMETHASONE
     Indication: Product used for unknown indication
     Route: 065
  4. PROMETHAZINE HYDROCHLORIDE [Concomitant]
     Active Substance: PROMETHAZINE HYDROCHLORIDE
  5. METHYLCOBALAMIN [Concomitant]
     Active Substance: METHYLCOBALAMIN

REACTIONS (11)
  - Amaurosis [Not Recovered/Not Resolved]
  - Loss of consciousness [Recovered/Resolved]
  - Infusion related reaction [Not Recovered/Not Resolved]
  - Pruritus [Not Recovered/Not Resolved]
  - Chest discomfort [Not Recovered/Not Resolved]
  - Product quality issue [Unknown]
  - Pruritus [Unknown]
  - Dizziness [Unknown]
  - Hypoaesthesia [Unknown]
  - Reoviral infection [Unknown]
  - Tinea infection [Unknown]

NARRATIVE: CASE EVENT DATE: 20220701
